FAERS Safety Report 7332291-1 (Version None)
Quarter: 2011Q1

REPORT INFORMATION
  Report Type: 
  Country: None (occurrence: None)
  Receive Date: 20110304
  Receipt Date: 20110301
  Transmission Date: 20110831
  Serious: Yes (Other)
  Sender: FDA-Public Use
  Company Number: BR-ABBOTT-11P-020-0708495-00

PATIENT
  Sex: Female
  Weight: 69 kg

DRUGS (10)
  1. TRANSMAX [Concomitant]
     Indication: DEPRESSION
     Route: 048
  2. EUTHYROX [Concomitant]
     Indication: HYPOTHYROIDISM
     Route: 048
  3. OS-CAL [Concomitant]
     Indication: OSTEOPENIA
     Route: 048
  4. DEPAKOTE ER [Suspect]
     Indication: EPILEPSY
     Route: 048
     Dates: start: 20110301
  5. DEPAKOTE ER [Suspect]
     Indication: INFARCTION
     Route: 048
     Dates: start: 20110101, end: 20110228
  6. DALTAO [Concomitant]
     Indication: EPILEPSY
     Route: 048
  7. ENALAPRIL [Concomitant]
     Indication: HYPERTENSION
     Route: 048
  8. ALPRAZOLAM [Concomitant]
     Indication: ANXIETY
     Route: 048
  9. AMLODIPINE [Concomitant]
     Indication: HYPERTENSION
     Route: 048
  10. PROTOS [Concomitant]
     Indication: OSTEOPENIA
     Route: 048

REACTIONS (1)
  - APPENDICITIS [None]
